FAERS Safety Report 24188196 (Version 1)
Quarter: 2024Q3

REPORT INFORMATION
  Report Type: Spontaneous
  Country: BE (occurrence: BE)
  Receive Date: 20240808
  Receipt Date: 20240808
  Transmission Date: 20241017
  Serious: Yes (Hospitalization)
  Sender: ACCORD
  Company Number: None

PATIENT
  Age: 69 Year
  Sex: Female
  Weight: 68.2 kg

DRUGS (11)
  1. CARBOPLATIN [Suspect]
     Active Substance: CARBOPLATIN
     Indication: Product used for unknown indication
     Dates: end: 20221118
  2. FURADANTIN [Concomitant]
     Active Substance: NITROFURANTOIN
     Dosage: 100 MG, 3X DAILY FOR 5 DAYS
  3. MOVICOL [Concomitant]
     Active Substance: POLYETHYLENE GLYCOL 3350\POTASSIUM CHLORIDE\SODIUM BICARBONATE\SODIUM CHLORIDE
     Dosage: 1 SACHET EVERY 12 HOURS FOR CONSTIPATION
  4. ZANTAC [Concomitant]
     Active Substance: RANITIDINE HYDROCHLORIDE
     Dosage: 150 MG
  5. IBUPROFEN [Concomitant]
     Active Substance: IBUPROFEN
     Dosage: 600 MG
  6. PRIMPERAN [Concomitant]
     Active Substance: METOCLOPRAMIDE HYDROCHLORIDE
     Dosage: 10 MG, 1 TABLET EVERY 8 HOURS FOR NAUSEA
  7. DAFALGAN [Concomitant]
     Active Substance: ACETAMINOPHEN
     Dosage: EFFERVESCENT TABLETS 1 G
  8. DICLOFENAC [Concomitant]
     Active Substance: DICLOFENAC
     Dosage: 75 MG, DICLOFENAC MYLAN
  9. DEXAMETHASONE [Concomitant]
     Active Substance: DEXAMETHASONE
     Dosage: 12 HOURS AND 6 HOURS BEFORE CHEMOTHERAPY
  10. TRAMADOL HYDROCHLORIDE [Concomitant]
     Active Substance: TRAMADOL HYDROCHLORIDE
     Dosage: 1 LOZENGE EVERY 6 HOURS
  11. MOTILIUM [Concomitant]
     Active Substance: DOMPERIDONE
     Dosage: IF INSUFFICIENT EFFECT OF PRIMPERAN AGAINST NAUSEA

REACTIONS (3)
  - Nausea [Recovered/Resolved]
  - Throat irritation [Recovered/Resolved]
  - Pharyngeal swelling [Recovered/Resolved]

NARRATIVE: CASE EVENT DATE: 20221118
